FAERS Safety Report 20993279 (Version 1)
Quarter: 2022Q2

REPORT INFORMATION
  Report Type: Other
  Country: SE (occurrence: SE)
  Receive Date: 20220622
  Receipt Date: 20220622
  Transmission Date: 20220721
  Serious: Yes (Other)
  Sender: FDA-Public Use
  Company Number: None

PATIENT
  Age: 32 Year
  Sex: Female

DRUGS (7)
  1. AMPHOTERICIN B [Suspect]
     Active Substance: AMPHOTERICIN B
     Indication: Febrile neutropenia
     Route: 042
     Dates: start: 20220513, end: 20220520
  2. CILASTATIN SODIUM\IMIPENEM [Suspect]
     Active Substance: CILASTATIN SODIUM\IMIPENEM
     Indication: Febrile neutropenia
     Dosage: 3 DF, ONCE DAILY (1G X 3)
     Route: 042
     Dates: start: 20220516
  3. DAUNORUBICIN [Suspect]
     Active Substance: DAUNORUBICIN
     Indication: Acute myeloid leukaemia
     Dosage: 60 MG/M2, THRICE DAILY (60 MG/M2 X1 TID)
     Route: 042
     Dates: start: 20220428, end: 20220430
  4. CYTARABINE [Suspect]
     Active Substance: CYTARABINE
     Indication: Acute myeloid leukaemia
     Dosage: 1000 MG/M2, TWICE DAILY (1000 MG/M2 X2)
     Route: 042
     Dates: start: 20220428, end: 20220502
  5. PARACETAMOL APOFRI [Concomitant]
     Indication: Product used for unknown indication
     Dosage: UNK UNK, UNKNOWN FREQ.
     Route: 065
  6. MORFIN ABCUR [Concomitant]
     Indication: Product used for unknown indication
     Dosage: UNK UNK, UNKNOWN FREQ.
     Route: 065
  7. VANCOMYCIN STRIDES [Concomitant]
     Indication: Product used for unknown indication
     Dosage: UNK UNK, UNKNOWN FREQ.
     Route: 065

REACTIONS (3)
  - Foetal death [Unknown]
  - Foetal growth restriction [Unknown]
  - Maternal exposure during pregnancy [Recovered/Resolved]

NARRATIVE: CASE EVENT DATE: 20220518
